FAERS Safety Report 5408673-1 (Version None)
Quarter: 2007Q3

REPORT INFORMATION
  Report Type: 
  Country: None (occurrence: None)
  Receive Date: 20070808
  Receipt Date: 20070803
  Transmission Date: 20080115
  Serious: Yes (Death)
  Sender: FDA-Public Use
  Company Number: A0610375A

PATIENT
  Age: 53 Year
  Sex: Male
  Weight: 90.5 kg

DRUGS (5)
  1. PAXIL CR [Suspect]
     Indication: DRUG USE FOR UNKNOWN INDICATION
     Dosage: 25MG UNKNOWN
     Route: 048
     Dates: start: 20030101, end: 20040101
  2. PAXIL [Suspect]
     Indication: DRUG USE FOR UNKNOWN INDICATION
     Dosage: 20MG PER DAY
     Route: 048
     Dates: start: 20020101
  3. ASPIRIN [Concomitant]
  4. PRAVACHOL [Concomitant]
  5. AVAPRO [Concomitant]

REACTIONS (1)
  - COMPLETED SUICIDE [None]
